APPROVED DRUG PRODUCT: BONIVA
Active Ingredient: IBANDRONATE SODIUM
Strength: EQ 2.5MG BASE **Federal Register determination that product was not discontinued or withdrawn for safety or effectiveness reasons**
Dosage Form/Route: TABLET;ORAL
Application: N021455 | Product #001
Applicant: HOFFMANN LA ROCHE INC
Approved: May 16, 2003 | RLD: Yes | RS: No | Type: DISCN